FAERS Safety Report 5677103-7 (Version None)
Quarter: 2008Q1

REPORT INFORMATION
  Report Type: 
  Country: None (occurrence: None)
  Receive Date: 20080324
  Receipt Date: 20080312
  Transmission Date: 20080703
  Serious: Yes (Hospitalization)
  Sender: FDA-Public Use
  Company Number: US-AMGEN-STX269377

PATIENT
  Sex: Female

DRUGS (1)
  1. ENBREL [Suspect]
     Indication: PSORIASIS
     Route: 058
     Dates: start: 20041201

REACTIONS (7)
  - BLOOD POTASSIUM DECREASED [None]
  - DIZZINESS [None]
  - GAIT DISTURBANCE [None]
  - GASTRIC BYPASS [None]
  - INJECTION SITE PAIN [None]
  - PSORIASIS [None]
  - VIRAL INFECTION [None]
